FAERS Safety Report 4706331-X (Version None)
Quarter: 2005Q2

REPORT INFORMATION
  Report Type: 
  Country: None (occurrence: None)
  Receive Date: 20050629
  Receipt Date: 20050617
  Transmission Date: 20051028
  Serious: Yes (Death)
  Sender: FDA-Public Use
  Company Number: 2005-BP-10600RO

PATIENT
  Age: 17 Year
  Sex: Female

DRUGS (7)
  1. MERCAPTOPURINE [Suspect]
     Indication: CROHN'S DISEASE
     Dosage: 50-75 MG DAILY
  2. INFLIXIMAB (INFLIXIMAB) [Suspect]
     Indication: CROHN'S DISEASE
     Dosage: 20 X 5MG/KG DOSES OVER 29 MONTHS
  3. MESALAMINE [Suspect]
     Indication: CROHN'S DISEASE
     Dosage: 3 G DAILY
  4. PREDNISONE [Concomitant]
  5. HYDROCORTISONE [Concomitant]
  6. MESALAMINE [Concomitant]
  7. METRONIDAZOLE [Concomitant]

REACTIONS (5)
  - AUTOIMMUNE HEPATITIS [None]
  - HEPATOSPLENOMEGALY [None]
  - PANCYTOPENIA [None]
  - SEPSIS [None]
  - T-CELL LYMPHOMA [None]
